FAERS Safety Report 6403718-4 (Version None)
Quarter: 2009Q4

REPORT INFORMATION
  Report Type: 
  Country: None (occurrence: None)
  Receive Date: 20091015
  Receipt Date: 20091015
  Transmission Date: 20100525
  Serious: Yes (Hospitalization)
  Sender: FDA-Public Use
  Company Number: None

PATIENT
  Sex: Female
  Weight: 61 kg

DRUGS (1)
  1. CHOLETEC [Suspect]
     Indication: GASTROINTESTINAL SCAN
     Dosage: 5.5 MCI   ONCE   IV BOLUS
     Route: 040
     Dates: start: 20090219, end: 20090219

REACTIONS (3)
  - BLOOD PRESSURE INCREASED [None]
  - DYSPNOEA [None]
  - RESPIRATORY RATE INCREASED [None]
